FAERS Safety Report 4875159-2 (Version None)
Quarter: 2006Q1

REPORT INFORMATION
  Report Type: 
  Country: None (occurrence: None)
  Receive Date: 20060104
  Receipt Date: 20051228
  Transmission Date: 20060701
  Serious: Yes (Hospitalization)
  Sender: FDA-Public Use
  Company Number: 2005016946

PATIENT
  Sex: Female
  Weight: 61.6892 kg

DRUGS (4)
  1. LIPITOR [Suspect]
     Indication: BLOOD CHOLESTEROL INCREASED
     Dosage: 10 MG (10 MG, 1 IN 1 D),
  2. PROCARDIA [Concomitant]
  3. PLAVIX [Concomitant]
  4. SYNTHROID [Concomitant]

REACTIONS (6)
  - BLOOD TRIGLYCERIDES ABNORMAL [None]
  - BRONCHITIS [None]
  - DEHYDRATION [None]
  - DRY EYE [None]
  - GASTROENTERITIS VIRAL [None]
  - MUSCLE SPASMS [None]
